FAERS Safety Report 9026462 (Version 3)
Quarter: 2013Q3

REPORT INFORMATION
  Report Type: Spontaneous
  Country: JP (occurrence: JP)
  Receive Date: 20130123
  Receipt Date: 20130712
  Transmission Date: 20140515
  Serious: Yes (Other)
  Sender: FDA-Public Use
  Company Number: JP-JNJFOC-20130109063

PATIENT
  Age: 7 Decade
  Sex: Male

DRUGS (5)
  1. INVEGA [Suspect]
     Indication: SCHIZOPHRENIA
     Route: 048
     Dates: start: 201201, end: 20130102
  2. LONASEN [Concomitant]
     Indication: SCHIZOPHRENIA
     Route: 048
  3. BARNETIL [Concomitant]
     Indication: SCHIZOPHRENIA
     Route: 048
  4. CHLORPROMAZINE HYDROCHLORIDE [Concomitant]
     Indication: SCHIZOPHRENIA
     Route: 048
  5. FLUDECASIN [Concomitant]
     Indication: SCHIZOPHRENIA
     Route: 030

REACTIONS (1)
  - Hypoglycaemic unconsciousness [Recovered/Resolved]
